FAERS Safety Report 5327692-7 (Version None)
Quarter: 2007Q2

REPORT INFORMATION
  Report Type: 
  Country: None (occurrence: None)
  Receive Date: 20070517
  Receipt Date: 20070508
  Transmission Date: 20071010
  Serious: Yes (Death, Hospitalization)
  Sender: FDA-Public Use
  Company Number: US-MERCK-0705USA01719

PATIENT
  Age: 75 Year
  Sex: Male

DRUGS (1)
  1. CLINORIL [Suspect]
     Route: 048

REACTIONS (2)
  - CHOLESTASIS [None]
  - HEPATITIS TOXIC [None]
